FAERS Safety Report 8211617-0 (Version None)
Quarter: 2012Q1

REPORT INFORMATION
  Report Type: 
  Country: None (occurrence: None)
  Receive Date: 20120315
  Receipt Date: 20120306
  Transmission Date: 20120608
  Serious: Yes (Other)
  Sender: FDA-Public Use
  Company Number: CA-JNJFOC-20120303978

PATIENT
  Sex: Female

DRUGS (11)
  1. VITAMIN B-12 [Concomitant]
  2. IMOVANE [Concomitant]
  3. METHOTREXATE [Concomitant]
  4. DETROL [Concomitant]
  5. SIMPONI [Suspect]
     Indication: PSORIATIC ARTHROPATHY
     Route: 058
     Dates: start: 20100702
  6. FLEXERIL [Concomitant]
  7. CYCLOBENZAPRINE HCL [Concomitant]
  8. METOCLOPRAMIDE [Concomitant]
  9. TRAZODONE HCL [Concomitant]
  10. METFORMIN HCL [Concomitant]
  11. DIOVAN HCT [Concomitant]

REACTIONS (1)
  - BENIGN INTRACRANIAL HYPERTENSION [None]
